FAERS Safety Report 7306142-5 (Version None)
Quarter: 2011Q1

REPORT INFORMATION
  Report Type: 
  Country: None (occurrence: None)
  Receive Date: 20110210
  Receipt Date: 20110131
  Transmission Date: 20110831
  Serious: Yes (Other)
  Sender: FDA-Public Use
  Company Number: WAES 1007USA00046

PATIENT
  Age: 58 Year
  Sex: Female

DRUGS (9)
  1. ASPIRIN [Concomitant]
  2. BIO-OGI-TO [Concomitant]
  3. VALSARTAN [Concomitant]
  4. ZETIA [Suspect]
     Indication: HYPERCHOLESTEROLAEMIA
     Dosage: 10 MG/DAILY, PO
     Route: 048
     Dates: start: 20080608
  5. ASPIRIN [Concomitant]
  6. AMLODIPINE BESYLATE [Concomitant]
  7. REBAMIPIDE [Concomitant]
  8. CELECOXIB [Concomitant]
  9. THIAMINE MONOITRATE [Concomitant]

REACTIONS (1)
  - RETINAL DETACHMENT [None]
